FAERS Safety Report 25363445 (Version 1)
Quarter: 2025Q2

REPORT INFORMATION
  Report Type: Spontaneous
  Country: GB (occurrence: None)
  Receive Date: 20250527
  Receipt Date: 20250527
  Transmission Date: 20250717
  Serious: Yes (Disabling)
  Sender: FDA-CTU
  Company Number: None

PATIENT
  Age: 47 Year
  Sex: Male

DRUGS (3)
  1. LYRICA [Suspect]
     Active Substance: PREGABALIN
     Indication: Anxiety
     Dosage: OTHER QUANTITY : 2 CAPSULE(S);?FREQUENCY : TWICE A DAY;?
     Route: 048
  2. ESCITALOPRAM [Concomitant]
     Active Substance: ESCITALOPRAM OXALATE
  3. MIRTAZAPINE [Concomitant]
     Active Substance: MIRTAZAPINE

REACTIONS (5)
  - Weight increased [None]
  - Vision blurred [None]
  - Anxiety [None]
  - Depression [None]
  - Skin irritation [None]

NARRATIVE: CASE EVENT DATE: 20180501
